FAERS Safety Report 20571060 (Version 7)
Quarter: 2024Q4

REPORT INFORMATION
  Report Type: Spontaneous
  Country: US (occurrence: US)
  Receive Date: 20220309
  Receipt Date: 20241124
  Transmission Date: 20250115
  Serious: Yes (Hospitalization, Disabling, Other)
  Sender: ORGANON
  Company Number: US-ORGANON-O2203USA000750

PATIENT
  Sex: Female

DRUGS (6)
  1. SINGULAIR [Suspect]
     Active Substance: MONTELUKAST SODIUM
     Indication: Asthma
     Dosage: 10 MILLIGRAM
     Route: 048
     Dates: start: 2009, end: 2014
  2. SINGULAIR [Suspect]
     Active Substance: MONTELUKAST SODIUM
     Dosage: UNK
     Route: 048
     Dates: start: 2011, end: 2021
  3. ALBUTEROL SULFATE [Concomitant]
     Active Substance: ALBUTEROL SULFATE
     Indication: Asthma
     Dosage: UNK (108 (90 BASE) MCG/ACT)
     Dates: start: 2009
  4. DULOXETINE [Concomitant]
     Active Substance: DULOXETINE
     Dosage: 1 CAPSULE, BID (AS DIRECTED)
     Route: 048
     Dates: start: 20201110
  5. TRIHEXYPHENIDYL [Concomitant]
     Active Substance: TRIHEXYPHENIDYL
     Dosage: 1 TABLET, QD
     Route: 048
     Dates: start: 20171121
  6. LATUDA [Concomitant]
     Active Substance: LURASIDONE HYDROCHLORIDE
     Dosage: 1 TABLET, QD (EVERY EVENING)
     Dates: start: 20171106

REACTIONS (32)
  - Crohn^s disease [Not Recovered/Not Resolved]
  - Abdominal pain [Unknown]
  - Weight decreased [Unknown]
  - Neuropsychological symptoms [Not Recovered/Not Resolved]
  - Anxiety [Not Recovered/Not Resolved]
  - Sleep disorder [Not Recovered/Not Resolved]
  - Suicidal ideation [Not Recovered/Not Resolved]
  - Aggression [Not Recovered/Not Resolved]
  - Depression [Not Recovered/Not Resolved]
  - Attention deficit hyperactivity disorder [Not Recovered/Not Resolved]
  - Migraine [Not Recovered/Not Resolved]
  - Intentional self-injury [Not Recovered/Not Resolved]
  - Bipolar disorder [Not Recovered/Not Resolved]
  - Major depression [Not Recovered/Not Resolved]
  - Post-traumatic stress disorder [Unknown]
  - Mental disorder due to a general medical condition [Recovered/Resolved]
  - Tachyphrenia [Unknown]
  - Panic attack [Unknown]
  - Persistent depressive disorder [Recovering/Resolving]
  - Disturbance in attention [Unknown]
  - Generalised anxiety disorder [Not Recovered/Not Resolved]
  - Mood altered [Recovering/Resolving]
  - Depressed mood [Not Recovered/Not Resolved]
  - Insomnia [Not Recovered/Not Resolved]
  - Abdominal pain lower [Recovered/Resolved]
  - Decreased appetite [Recovered/Resolved]
  - Joint swelling [Recovered/Resolved]
  - Nausea [Recovered/Resolved]
  - Fatigue [Unknown]
  - Malnutrition [Unknown]
  - Asthenia [Unknown]
  - Weight increased [Unknown]

NARRATIVE: CASE EVENT DATE: 20090101
